FAERS Safety Report 5907220-5 (Version None)
Quarter: 2008Q4

REPORT INFORMATION
  Report Type: 
  Country: None (occurrence: None)
  Receive Date: 20081003
  Receipt Date: 20080919
  Transmission Date: 20090506
  Serious: Yes (Other)
  Sender: FDA-Public Use
  Company Number: PHHY2008JP22023

PATIENT
  Sex: Female

DRUGS (8)
  1. FEMARA [Suspect]
     Indication: BREAST CANCER METASTATIC
     Route: 048
  2. XELODA [Suspect]
     Indication: BREAST CANCER METASTATIC
     Route: 048
  3. MOBIC [Concomitant]
     Route: 048
  4. TAGAMET [Concomitant]
     Route: 048
  5. CISPLATIN [Concomitant]
     Route: 042
  6. GRANISETRON [Concomitant]
     Route: 042
  7. CAMPTOSAR [Concomitant]
     Route: 042
  8. HERCEPTIN [Concomitant]

REACTIONS (1)
  - BLOOD AMYLASE INCREASED [None]
